FAERS Safety Report 11287246 (Version 1)
Quarter: 2015Q3

REPORT INFORMATION
  Report Type: Spontaneous
  Country: US (occurrence: None)
  Receive Date: 20150720
  Receipt Date: 20150720
  Transmission Date: 20151125
  Serious: No
  Sender: FDA-Public Use
  Company Number: None

PATIENT
  Age: 31 Year
  Sex: Female
  Weight: 70.31 kg

DRUGS (3)
  1. XULANE [Suspect]
     Active Substance: ETHINYL ESTRADIOL\NORELGESTROMIN
     Indication: CONTRACEPTION
     Dosage: APPLIED AS MEDICATED PATCH TO SKIN
  2. HYOSCYAMINE. [Concomitant]
     Active Substance: HYOSCYAMINE
  3. ORADEA [Concomitant]

REACTIONS (5)
  - Mood swings [None]
  - Haemorrhage [None]
  - Hot flush [None]
  - Malaise [None]
  - Product adhesion issue [None]

NARRATIVE: CASE EVENT DATE: 20150317
